FAERS Safety Report 6394849-6 (Version None)
Quarter: 2009Q4

REPORT INFORMATION
  Report Type: 
  Country: None (occurrence: None)
  Receive Date: 20091009
  Receipt Date: 20091005
  Transmission Date: 20100525
  Serious: Yes (Death)
  Sender: FDA-Public Use
  Company Number: PHHY2009JP36353

PATIENT
  Sex: Male

DRUGS (7)
  1. DIOVAN T30230+TAB+HY [Suspect]
     Indication: HYPERTENSION
     Dosage: 1 DF (80 MG), QD
     Route: 048
     Dates: start: 20080406, end: 20080918
  2. TENORMIN [Concomitant]
     Indication: HYPERTENSION
     Dosage: 25 MG
     Route: 048
     Dates: start: 19990416
  3. ITOROL [Concomitant]
     Dosage: 40 MG, UNK
     Route: 048
     Dates: start: 19990416
  4. HERBESSOR R [Concomitant]
     Dosage: 200 MG, UNK
     Route: 048
     Dates: start: 19990416
  5. BUFFERIN [Concomitant]
     Dosage: 81 MG,
     Route: 048
     Dates: start: 19990416
  6. PANALDINE [Concomitant]
     Dosage: 200 MG,
     Route: 048
     Dates: start: 19990416
  7. LIPITOR [Concomitant]
     Dosage: 10 MG,
     Dates: start: 19990416

REACTIONS (1)
  - CEREBRAL INFARCTION [None]
